FAERS Safety Report 25007480 (Version 4)
Quarter: 2025Q2

REPORT INFORMATION
  Report Type: Spontaneous
  Country: JP (occurrence: JP)
  Receive Date: 20250225
  Receipt Date: 20250430
  Transmission Date: 20250717
  Serious: Yes (Hospitalization, Other)
  Sender: GLAXOSMITHKLINE
  Company Number: JP-GSKJP-JP2025JPN020741AA

PATIENT

DRUGS (7)
  1. DAPRODUSTAT [Suspect]
     Active Substance: DAPRODUSTAT
     Indication: Nephrogenic anaemia
  2. DAPRODUSTAT [Suspect]
     Active Substance: DAPRODUSTAT
  3. MICARDIS [Concomitant]
     Active Substance: TELMISARTAN
  4. GASLON [Concomitant]
     Active Substance: IRSOGLADINE MALEATE
  5. CARVEDILOL [Concomitant]
     Active Substance: CARVEDILOL
  6. AZOSEMIDE [Concomitant]
     Active Substance: AZOSEMIDE
  7. FEBUXOSTAT [Concomitant]
     Active Substance: FEBUXOSTAT

REACTIONS (5)
  - Femur fracture [Unknown]
  - Fall [Unknown]
  - Arthralgia [Unknown]
  - Product use issue [Unknown]
  - Off label use [Unknown]

NARRATIVE: CASE EVENT DATE: 20250216
